FAERS Safety Report 24686955 (Version 1)
Quarter: 2024Q4

REPORT INFORMATION
  Report Type: Spontaneous
  Country: US (occurrence: None)
  Receive Date: 20241130
  Receipt Date: 20241130
  Transmission Date: 20250115
  Serious: No
  Sender: Public
  Company Number: None

PATIENT
  Age: 44 Year
  Weight: 74.25 kg

DRUGS (3)
  1. TORADOL [Suspect]
     Active Substance: KETOROLAC TROMETHAMINE
     Indication: Hospitalisation
     Route: 030
     Dates: start: 20240819, end: 20241125
  2. TORADOL [Suspect]
     Active Substance: KETOROLAC TROMETHAMINE
  3. Testosterone gel 20.25 [Concomitant]

REACTIONS (4)
  - Formication [None]
  - Back disorder [None]
  - Pruritus [None]
  - Arthropod infestation [None]

NARRATIVE: CASE EVENT DATE: 20241125
